FAERS Safety Report 18361184 (Version 9)
Quarter: 2021Q1

REPORT INFORMATION
  Report Type: Spontaneous
  Country: US (occurrence: US)
  Receive Date: 20201008
  Receipt Date: 20210125
  Transmission Date: 20210419
  Serious: No
  Sender: FDA-Public Use
  Company Number: US-VERTEX PHARMACEUTICALS-2020-019510

PATIENT
  Age: 12 Year
  Sex: Female
  Weight: 37.78 kg

DRUGS (19)
  1. CREON [Concomitant]
     Active Substance: PANCRELIPASE AMYLASE\PANCRELIPASE LIPASE\PANCRELIPASE PROTEASE
     Dosage: TAKE 3 WITH MEALS AND 2 WITH SNACKS 14 PER DAY
  2. AUGMENTIN [Concomitant]
     Active Substance: AMOXICILLIN\CLAVULANATE POTASSIUM
     Dosage: 400?57 MG/5 ML (10 ML BID FOR 14 DAYS)
  3. PULMOZYME [Concomitant]
     Active Substance: DORNASE ALFA
     Dosage: 1 MG/ML, (2.5 MG, EVERY MORNING)
  4. ACTIGALL [Concomitant]
     Active Substance: URSODIOL
     Dosage: 300 MG TAKE ONE TABLET TWICE A DAY
  5. FISH OIL [Concomitant]
     Active Substance: FISH OIL
     Dosage: TAKE ONE TABLET BY MOUTH
     Route: 048
  6. ZITHROMAX [Concomitant]
     Active Substance: AZITHROMYCIN DIHYDRATE
  7. ZYRTEC [Concomitant]
     Active Substance: CETIRIZINE HYDROCHLORIDE
     Dosage: 1 MG/1 ML, (10ML PER MOUTH TWICE DAILY AS NEEDE FOR ALLERGIES)
  8. GLYCOLAX [Concomitant]
     Active Substance: POLYETHYLENE GLYCOL 3350
     Indication: CONSTIPATION
     Dosage: 17 GRAMS AS NEEDED
     Route: 048
  9. FLORASTOR [LACTOBACILLUS ACIDOPHILUS] [Concomitant]
     Dosage: 250MG, TWICE DAILY
     Route: 048
  10. ZOFRAN [Concomitant]
     Active Substance: ONDANSETRON HYDROCHLORIDE
     Dosage: 1 TABLET EVERY 8 HOURS
  11. SODIUM CHLORIDE. [Concomitant]
     Active Substance: SODIUM CHLORIDE
     Dosage: 2 TIMES A DAY AS NEEDED
  12. PERIACTIN [Concomitant]
     Active Substance: CYPROHEPTADINE HYDROCHLORIDE
     Dosage: 4 MG QHS (INCREASE TO  4 MG BID)
  13. SYMDEKO [Suspect]
     Active Substance: IVACAFTOR\TEZACAFTOR
     Indication: CYSTIC FIBROSIS
     Dosage: 1 DOSAGE FORM, BID 100/150 MG (APPROXIMATELY 12 HOURS APART)
     Route: 048
     Dates: start: 201912, end: 202011
  14. VITAMIN D3 [Concomitant]
     Active Substance: CHOLECALCIFEROL
  15. FLONASE [MOMETASONE FUROATE] [Concomitant]
     Active Substance: MOMETASONE FUROATE
     Indication: RHINITIS
     Dosage: 50 MICROGRAMS/ACTUATION, (ONE SPARY INTO EACH NOSTRIL ONCE DAILY AS NEEDED FOR RHINITIS)
  16. BETHKIS [Concomitant]
     Active Substance: TOBRAMYCIN
     Dosage: 4 ML EVERY 12 HOURS
  17. ALBUTEROL SULFATE. [Concomitant]
     Active Substance: ALBUTEROL SULFATE
     Dosage: 90 MICROGRAM/ACTUATION (4 INHATIONS TWICE DAILY Q4H AS NEEDED)
  18. MVW COMPLETE FORMULATION D3000 [Concomitant]
     Active Substance: VITAMINS\ZINC
     Dosage: 1 CAPSULE BY MOUTH TWO TIMES A DAY
     Route: 048
  19. ALBUTEROL [SALBUTAMOL] [Concomitant]
     Active Substance: ALBUTEROL

REACTIONS (3)
  - Distal intestinal obstruction syndrome [Not Recovered/Not Resolved]
  - Weight decreased [Recovered/Resolved]
  - Gastroenteritis [Unknown]

NARRATIVE: CASE EVENT DATE: 2020
